FAERS Safety Report 4493247-X (Version None)
Quarter: 2004Q4

REPORT INFORMATION
  Report Type: 
  Country: None (occurrence: None)
  Receive Date: 20041104
  Receipt Date: 20041007
  Transmission Date: 20050328
  Serious: Yes (Life-Threatening, Hospitalization)
  Sender: FDA-Public Use
  Company Number: DE-BRISTOL-MYERS SQUIBB COMPANY-12725420

PATIENT
  Age: 64 Year
  Sex: Female
  Weight: 109 kg

DRUGS (2)
  1. CARBOPLATIN [Suspect]
     Indication: ENDOMETRIAL CANCER
     Dosage: AUC 6 CYCLE 2: 03-SEP-2004 CY 3:01-OCT
     Route: 042
     Dates: start: 20040806, end: 20040806
  2. CAELYX [Suspect]
     Indication: ENDOMETRIAL CANCER
     Dosage: CYCLE 2: 03-SEP-2004 CY 3:01-OCT DOSE = 80 MG
     Route: 042
     Dates: start: 20030806, end: 20030806

REACTIONS (8)
  - ANAEMIA [None]
  - ARTERIAL STENOSIS [None]
  - CARDIAC ARREST [None]
  - CEREBRAL INFARCTION [None]
  - CEREBRAL ISCHAEMIA [None]
  - GENERAL PHYSICAL HEALTH DETERIORATION [None]
  - SYNCOPE [None]
  - URINARY TRACT INFECTION [None]
